FAERS Safety Report 9869337 (Version 2)
Quarter: 2014Q1

REPORT INFORMATION
  Report Type: Spontaneous
  Country: DE (occurrence: DE)
  Receive Date: 20140205
  Receipt Date: 20140305
  Transmission Date: 20141002
  Serious: Yes (Other)
  Sender: FDA-Public Use
  Company Number: DE-JNJFOC-20140117544

PATIENT
  Age: 58 Year
  Sex: Male

DRUGS (6)
  1. RISPERDAL CONSTA [Suspect]
     Indication: MANIA
     Route: 030
     Dates: start: 2007
  2. RISPERDAL CONSTA [Suspect]
     Indication: SCHIZOAFFECTIVE DISORDER
     Route: 030
     Dates: start: 2007
  3. ORFIRIL [Concomitant]
     Indication: MANIA
     Route: 065
     Dates: start: 2004
  4. ORFIRIL [Concomitant]
     Indication: SCHIZOAFFECTIVE DISORDER
     Route: 065
     Dates: start: 2004
  5. VENLAFAXINE [Concomitant]
     Route: 065
     Dates: start: 2009
  6. QUETIAPINE [Concomitant]
     Route: 065
     Dates: start: 2011

REACTIONS (2)
  - Colon cancer [Unknown]
  - Metastasis [Unknown]
